FAERS Safety Report 5921868-3 (Version None)
Quarter: 2008Q4

REPORT INFORMATION
  Report Type: 
  Country: None (occurrence: None)
  Receive Date: 20081017
  Receipt Date: 20081006
  Transmission Date: 20090506
  Serious: Yes (Death)
  Sender: FDA-Public Use
  Company Number: US-ROCHE-587388

PATIENT
  Sex: Female
  Weight: 52.2 kg

DRUGS (4)
  1. XELODA [Suspect]
     Indication: RECTAL CANCER
     Route: 048
     Dates: start: 20080821, end: 20080902
  2. ESCITALOPRAM [Concomitant]
  3. PROGESTERONE [Concomitant]
  4. BUPROPION HCL [Concomitant]

REACTIONS (2)
  - ENTEROCOLITIS [None]
  - THROMBOCYTOPENIA [None]
